FAERS Safety Report 5311136-5 (Version None)
Quarter: 2007Q2

REPORT INFORMATION
  Report Type: 
  Country: None (occurrence: None)
  Receive Date: 20070430
  Receipt Date: 20070416
  Transmission Date: 20071010
  Serious: Yes (Other)
  Sender: FDA-Public Use
  Company Number: JP-ROCHE-488517

PATIENT
  Age: 32 Year
  Sex: Female
  Weight: 49 kg

DRUGS (7)
  1. TAMIFLU [Suspect]
     Route: 048
     Dates: start: 20070312, end: 20070312
  2. TAMIFLU [Suspect]
     Route: 048
     Dates: start: 20070313, end: 20070313
  3. OBELON [Concomitant]
     Route: 041
     Dates: start: 20070312, end: 20070312
  4. LINCOCIN [Concomitant]
     Route: 041
     Dates: start: 20070312, end: 20070312
  5. SOLITA-T3 [Concomitant]
     Dosage: DRUG NAME REPORTED AS: SOLITA-T NO.3.
     Route: 041
     Dates: start: 20070312, end: 20070312
  6. ASCORBIC ACID [Concomitant]
     Route: 041
     Dates: start: 20070312, end: 20070312
  7. FURSULTIAMINE [Concomitant]
     Route: 041
     Dates: start: 20070312, end: 20070312

REACTIONS (6)
  - ALOPECIA [None]
  - AMNESIA [None]
  - ARTHRALGIA [None]
  - EYE PAIN [None]
  - HEADACHE [None]
  - LOSS OF CONSCIOUSNESS [None]
